FAERS Safety Report 8607552-6 (Version None)
Quarter: 2012Q3

REPORT INFORMATION
  Report Type: 
  Country: None (occurrence: None)
  Receive Date: 20120821
  Receipt Date: 20120810
  Transmission Date: 20120928
  Serious: Yes (Hospitalization)
  Sender: FDA-Public Use
  Company Number: US-BAYER-2012-032739

PATIENT
  Age: 41 Year
  Sex: Female
  Weight: 73 kg

DRUGS (19)
  1. NEURONTIN [Concomitant]
     Dosage: 300 MG, TID
     Route: 048
  2. OXYCODONE HCL AND ACETAMINOPHEN [Concomitant]
     Indication: PAIN
     Dosage: 4 MG-325 MG, TAKE 1 TABLET EVERY 4 TO 6 HOURS PRN
     Route: 048
     Dates: start: 20100319
  3. YAZ [Suspect]
     Indication: PREMENSTRUAL SYNDROME
     Dosage: UNK
     Dates: start: 20091001, end: 20100501
  4. YAZ [Suspect]
  5. DILAUDID [Concomitant]
     Dosage: UNK
     Route: 048
     Dates: start: 20100204
  6. GAS RELIEF [Concomitant]
     Dosage: 125 MG, UNK
     Route: 048
  7. ARTHROTEC [Concomitant]
     Dosage: 75 MG, 1 TABLET EVERY 12 HOURS
     Route: 048
     Dates: start: 20100228
  8. HYDROCODONE BITARTRATE AND ACETAMINOPHEN [Concomitant]
     Indication: PAIN
     Dosage: 5 MG/500 MG TABS , TAKE 1 TO 2 TABLETS EVERY 6 HOURS PRN
     Route: 048
     Dates: start: 20100228
  9. HYDROCODONE BITARTRATE AND ACETAMINOPHEN [Concomitant]
     Dosage: 10 MG/325 MG, TAKE 1-2 TABLETS EVERY 4 TO 6 HOURS PRN
     Route: 048
     Dates: start: 20100322
  10. DILAUDID [Concomitant]
     Dosage: UNK
     Route: 030
     Dates: start: 20100204
  11. SKELAXIN [Concomitant]
     Dosage: 800 MG, TID
     Route: 048
  12. DROSPIRENONE AND ETHINYL ESTRADIOL [Suspect]
     Indication: PREMENSTRUAL SYNDROME
     Dosage: UNK
     Dates: start: 20090601, end: 20090901
  13. PHENERGAN HCL [Concomitant]
     Dosage: UNK
     Route: 030
     Dates: start: 20100204
  14. ALIMENTARY TRACT AND METABOLISM [Concomitant]
     Dosage: 2 PILLS, PRN
     Route: 048
  15. BISMUTH SUBSALICYLATE [Concomitant]
     Indication: ABDOMINAL PAIN UPPER
     Dosage: 1X2 TSP.
     Dates: start: 20100201
  16. ZITHROMAX [Concomitant]
     Dosage: UNK
     Dates: start: 20100101
  17. DROSPIRENONE AND ETHINYL ESTRADIOL [Suspect]
  18. MEDROL [Concomitant]
     Dosage: UNK
     Dates: start: 20100204
  19. LIDODERM [Concomitant]
     Dosage: UNK UNK, BID FOR 30 DAYS
     Dates: start: 20100205

REACTIONS (8)
  - DYSPNOEA [None]
  - EMOTIONAL DISTRESS [None]
  - DEEP VEIN THROMBOSIS [None]
  - ANXIETY [None]
  - INJURY [None]
  - PULMONARY EMBOLISM [None]
  - PAIN [None]
  - GENERAL PHYSICAL HEALTH DETERIORATION [None]
